FAERS Safety Report 7617975-X (Version None)
Quarter: 2011Q3

REPORT INFORMATION
  Report Type: 
  Country: None (occurrence: None)
  Receive Date: 20110718
  Receipt Date: 20110706
  Transmission Date: 20111222
  Serious: Yes (Other)
  Sender: FDA-Public Use
  Company Number: PHHY2011CA58105

PATIENT
  Sex: Female

DRUGS (6)
  1. LIPITOR [Concomitant]
  2. PERINDOPRIL ERBUMINE [Concomitant]
  3. ATENOLOL [Concomitant]
  4. SANDOSTATIN LAR [Suspect]
     Indication: CARCINOID TUMOUR
     Dosage: 20 MG, EVERY 4 WEEKS
     Route: 030
     Dates: start: 20050101
  5. SANDOSTATIN LAR [Suspect]
     Dosage: 20 MG, QMO
  6. LASIX [Concomitant]

REACTIONS (3)
  - DEPRESSED MOOD [None]
  - INSOMNIA [None]
  - DYSPNOEA [None]
